FAERS Safety Report 6169551-6 (Version None)
Quarter: 2009Q2

REPORT INFORMATION
  Report Type: 
  Country: None (occurrence: None)
  Receive Date: 20090428
  Receipt Date: 20090421
  Transmission Date: 20091009
  Serious: Yes (Other)
  Sender: FDA-Public Use
  Company Number: US-JNJFOC-20090405677

PATIENT
  Sex: Male
  Weight: 88.45 kg

DRUGS (10)
  1. FENTANYL TRANSDERMAL SYSTEM [Suspect]
     Indication: PAIN
     Route: 062
  2. REMERON [Suspect]
     Indication: DEPRESSION
     Route: 048
  3. MORPHINE [Concomitant]
     Route: 048
  4. MORPHINE [Concomitant]
     Dosage: 2 TABLESTS OF 15 MG, AS NEEDED
     Route: 048
  5. MORPHINE [Concomitant]
     Indication: BREAKTHROUGH PAIN
     Dosage: AS NEEDED
     Route: 048
  6. CYMBALTA [Concomitant]
     Indication: DEPRESSION
     Dosage: NIGHTLY
     Route: 048
  7. PHENERGAN [Concomitant]
     Indication: VOMITING
     Route: 048
  8. PHENERGAN [Concomitant]
     Indication: NAUSEA
     Dosage: AS NEEDED
     Route: 048
  9. REGLAN [Concomitant]
     Indication: VOMITING
     Route: 048
  10. REGLAN [Concomitant]
     Indication: NAUSEA
     Dosage: AS NEEDED
     Route: 048

REACTIONS (13)
  - ABDOMINAL PAIN LOWER [None]
  - APPLICATION SITE VESICLES [None]
  - DEVICE LEAKAGE [None]
  - DRUG PRESCRIBING ERROR [None]
  - INCREASED APPETITE [None]
  - NAUSEA [None]
  - NEPHROLITHIASIS [None]
  - PRODUCT QUALITY ISSUE [None]
  - PRURITUS GENERALISED [None]
  - RASH GENERALISED [None]
  - ULCER [None]
  - VOMITING [None]
  - WEIGHT INCREASED [None]
